FAERS Safety Report 7826246-8 (Version None)
Quarter: 2011Q4

REPORT INFORMATION
  Report Type: 
  Country: None (occurrence: None)
  Receive Date: 20111020
  Receipt Date: 20111010
  Transmission Date: 20120403
  Serious: No
  Sender: FDA-Public Use
  Company Number: US-BIOGENIDEC-2010BI021852

PATIENT
  Sex: Male

DRUGS (1)
  1. TYSABRI [Suspect]
     Indication: MULTIPLE SCLEROSIS
     Route: 042
     Dates: start: 20090930, end: 20101027

REACTIONS (3)
  - CD4 LYMPHOCYTES DECREASED [None]
  - CD4 LYMPHOCYTES ABNORMAL [None]
  - CD8 LYMPHOCYTES DECREASED [None]
